FAERS Safety Report 16689218 (Version 2)
Quarter: 2019Q3

REPORT INFORMATION
  Report Type: Spontaneous
  Country: DE (occurrence: DE)
  Receive Date: 20190809
  Receipt Date: 20190819
  Transmission Date: 20191004
  Serious: Yes (Other)
  Sender: FDA-Public Use
  Company Number: DE-GILEAD-2019-0422758

PATIENT
  Age: 51 Year
  Sex: Male
  Weight: 72 kg

DRUGS (5)
  1. BIKTARVY [Suspect]
     Active Substance: BICTEGRAVIR SODIUM\EMTRICITABINE\TENOFOVIR ALAFENAMIDE FUMARATE
     Indication: HIV INFECTION
     Dosage: 50/200/25
     Route: 048
     Dates: start: 201903
  2. GENVOYA [Suspect]
     Active Substance: COBICISTAT\ELVITEGRAVIR\EMTRICITABINE\TENOFOVIR ALAFENAMIDE FUMARATE
     Indication: HIV INFECTION
     Dosage: UNK
     Route: 048
     Dates: start: 201807, end: 201902
  3. EZESIMVA [Concomitant]
     Indication: HYPERCHOLESTEROLAEMIA
     Dosage: 10/20
     Route: 048
     Dates: start: 201903
  4. ALLOPURINOL. [Concomitant]
     Active Substance: ALLOPURINOL
     Indication: HYPERURICAEMIA
     Dosage: 100
     Route: 048
     Dates: start: 201603
  5. NEBIVOLOL. [Concomitant]
     Active Substance: NEBIVOLOL
     Indication: HYPERTENSION
     Dosage: 2.5 MG
     Route: 048
     Dates: start: 201701

REACTIONS (2)
  - Liver function test increased [Not Recovered/Not Resolved]
  - HIV test positive [Not Recovered/Not Resolved]

NARRATIVE: CASE EVENT DATE: 201903
